FAERS Safety Report 12204528 (Version 1)
Quarter: 2016Q1

REPORT INFORMATION
  Report Type: Spontaneous
  Country: US (occurrence: None)
  Receive Date: 20160322
  Receipt Date: 20160322
  Transmission Date: 20160526
  Serious: Yes (Other)
  Sender: FDA-Public Use
  Company Number: None

PATIENT
  Sex: Female

DRUGS (3)
  1. ACTEMRA [Suspect]
     Active Substance: TOCILIZUMAB
     Indication: PRODUCT USED FOR UNKNOWN INDICATION
     Route: 058
     Dates: start: 201602
  2. ACTEMRA [Suspect]
     Active Substance: TOCILIZUMAB
     Indication: C-REACTIVE PROTEIN INCREASED
     Route: 058
     Dates: start: 201602
  3. ACTEMRA [Suspect]
     Active Substance: TOCILIZUMAB
     Indication: RHEUMATOID ARTHRITIS
     Route: 058
     Dates: start: 201602

REACTIONS (2)
  - Urine odour abnormal [None]
  - Skin odour abnormal [None]
